FAERS Safety Report 5175889-1 (Version None)
Quarter: 2006Q4

REPORT INFORMATION
  Report Type: 
  Country: None (occurrence: None)
  Receive Date: 20061215
  Receipt Date: 20060313
  Transmission Date: 20070319
  Serious: Yes (Disabling)
  Sender: FDA-Public Use
  Company Number: JP-JPN-A200600944

PATIENT
  Age: 52 Year
  Sex: Male

DRUGS (20)
  1. HEPSERA [Suspect]
     Indication: HEPATIC CIRRHOSIS
     Route: 048
     Dates: start: 20020311
  2. CELLCEPT [Suspect]
     Indication: DRUG USE FOR UNKNOWN INDICATION
     Dosage: 250MG VARIABLE DOSE
     Dates: start: 20020701, end: 20050720
  3. PROGRAF [Suspect]
     Route: 048
     Dates: start: 20020501
  4. PREDONINE [Suspect]
     Indication: DRUG USE FOR UNKNOWN INDICATION
     Route: 048
     Dates: start: 20020601, end: 20050914
  5. LANSOPRAZOLE [Concomitant]
     Route: 048
  6. LOXONIN [Concomitant]
     Route: 048
  7. LASIX [Concomitant]
     Indication: HEPATIC CIRRHOSIS
     Dosage: 20MG TWICE PER DAY
     Route: 048
     Dates: end: 20020501
  8. POLYMYXIN B SULFATE [Concomitant]
     Dosage: 1IU6 THREE TIMES PER DAY
     Route: 048
     Dates: end: 20020501
  9. GASTER D [Concomitant]
     Indication: GASTRIC ULCER
     Dosage: 20MG TWICE PER DAY
     Route: 048
     Dates: end: 20020501
  10. DIFLUCAN [Concomitant]
     Indication: FUNGAL INFECTION
     Dosage: 100MG TWICE PER DAY
     Route: 048
     Dates: end: 20020501
  11. ALDACTONE [Concomitant]
     Indication: HEPATIC CIRRHOSIS
     Dosage: 50MG PER DAY
     Route: 048
     Dates: end: 20020501
  12. AMINOLEBAN [Concomitant]
     Indication: HEPATIC CIRRHOSIS
     Dosage: 50MG TWICE PER DAY
     Route: 048
     Dates: end: 20020501
  13. BIOFERMIN R [Concomitant]
     Indication: ENTEROCOLITIS
     Dosage: 1G THREE TIMES PER DAY
     Route: 048
     Dates: end: 20020501
  14. ZOVIRAX [Concomitant]
     Dosage: 200MG THREE TIMES PER DAY
     Route: 048
     Dates: start: 20020501
  15. DAONIL [Concomitant]
     Indication: DIABETES MELLITUS
     Dosage: 5MG PER DAY
     Route: 048
     Dates: start: 20020701
  16. PARIET [Concomitant]
     Indication: GASTRIC ULCER
     Dosage: 10MG PER DAY
     Route: 048
     Dates: start: 20020501
  17. MUCOSTA [Concomitant]
     Indication: GASTRIC ULCER
     Dosage: 100MG THREE TIMES PER DAY
     Route: 048
     Dates: start: 20020501
  18. PERSANTIN [Concomitant]
     Dosage: 100MG THREE TIMES PER DAY
     Route: 048
     Dates: start: 20020501
  19. URSO [Concomitant]
     Indication: CHOLESTASIS
     Dosage: 100MG THREE TIMES PER DAY
     Route: 048
     Dates: start: 20020501
  20. ZEFIX [Concomitant]
     Indication: HEPATIC CIRRHOSIS
     Dosage: 100MG PER DAY
     Route: 048
     Dates: start: 20000101, end: 20041201

REACTIONS (25)
  - ALANINE AMINOTRANSFERASE INCREASED [None]
  - ARTHRALGIA [None]
  - ASPARTATE AMINOTRANSFERASE INCREASED [None]
  - BLOOD ALKALINE PHOSPHATASE INCREASED [None]
  - BLOOD BILIRUBIN INCREASED [None]
  - BLOOD CHLORIDE INCREASED [None]
  - BLOOD CREATININE INCREASED [None]
  - BLOOD LACTATE DEHYDROGENASE INCREASED [None]
  - BLOOD UREA INCREASED [None]
  - BONE DENSITY DECREASED [None]
  - CREATINE PHOSPHOKINASE DECREASED [None]
  - DRUG LEVEL INCREASED [None]
  - GAMMA-GLUTAMYLTRANSFERASE INCREASED [None]
  - HAEMATOCRIT DECREASED [None]
  - HAEMOGLOBIN DECREASED [None]
  - HYPOPHOSPHATAEMIA [None]
  - MONOCYTE COUNT INCREASED [None]
  - MUSCLE ATROPHY [None]
  - OSTEOMALACIA [None]
  - OSTEOPOROSIS [None]
  - PLATELET COUNT DECREASED [None]
  - PROTEIN TOTAL DECREASED [None]
  - RED BLOOD CELL COUNT DECREASED [None]
  - RENAL TUBULAR DISORDER [None]
  - WHITE BLOOD CELL COUNT DECREASED [None]
